FAERS Safety Report 8602619-0 (Version None)
Quarter: 2012Q3

REPORT INFORMATION
  Report Type: 
  Country: None (occurrence: None)
  Receive Date: 20120817
  Receipt Date: 20120806
  Transmission Date: 20120928
  Serious: Yes (Hospitalization)
  Sender: FDA-Public Use
  Company Number: JP-NAPPMUNDI-MAG-2012-0002247

PATIENT
  Age: 82 Year
  Sex: Female

DRUGS (1)
  1. BUPRENORPHINE [Suspect]
     Indication: BACK PAIN
     Dosage: UNK
     Route: 062

REACTIONS (3)
  - HALLUCINATION, VISUAL [None]
  - DELUSION [None]
  - DISORIENTATION [None]
